FAERS Safety Report 19952108 (Version 1)
Quarter: 2021Q4

REPORT INFORMATION
  Report Type: Report from Study
  Country: CA (occurrence: CA)
  Receive Date: 20211014
  Receipt Date: 20211014
  Transmission Date: 20220304
  Serious: Yes (Hospitalization)
  Sender: FDA-Public Use
  Company Number: CA-QED THERAPEUTICS-QED-2021-000081

PATIENT
  Age: 55 Year
  Sex: Male
  Weight: 118 kg

DRUGS (19)
  1. INFIGRATINIB [Suspect]
     Active Substance: INFIGRATINIB
     Indication: Cholangiocarcinoma
     Dosage: 125 MILLIGRAM, QD
     Route: 048
     Dates: start: 20201216, end: 20210105
  2. INFIGRATINIB [Suspect]
     Active Substance: INFIGRATINIB
     Indication: Cholangiocarcinoma
     Dosage: 125 MILLIGRAM, QD
     Route: 048
     Dates: start: 20210114, end: 20210203
  3. INFIGRATINIB [Suspect]
     Active Substance: INFIGRATINIB
     Dosage: 125 MILLIGRAM, QD
     Route: 048
     Dates: start: 20210211, end: 20210226
  4. INFIGRATINIB [Suspect]
     Active Substance: INFIGRATINIB
     Dosage: 100 MILLIGRAM, QD
     Route: 048
     Dates: start: 20210311, end: 20210331
  5. INFIGRATINIB [Suspect]
     Active Substance: INFIGRATINIB
     Dosage: 100 MILLIGRAM, QD
     Route: 048
     Dates: start: 20210408, end: 20210417
  6. INFIGRATINIB [Suspect]
     Active Substance: INFIGRATINIB
     Dosage: 100 MILLIGRAM, QD
     Route: 048
     Dates: start: 20210419, end: 20210428
  7. BETADERM [Concomitant]
     Active Substance: BETAMETHASONE VALERATE
     Indication: Rash
     Dosage: 1 APPLICATION, BID
     Route: 061
     Dates: start: 20210224
  8. DILAUDID [Concomitant]
     Active Substance: HYDROMORPHONE HYDROCHLORIDE
     Indication: Back pain
     Dosage: 1 MILLIGRAM, PRN
     Route: 048
     Dates: start: 20201112
  9. FAMOTIDINE [Concomitant]
     Active Substance: FAMOTIDINE
     Indication: Gastrooesophageal reflux disease
     Dosage: 40 MILLIGRAM, QD
     Route: 048
     Dates: start: 20210106
  10. FUROSEMIDE [Concomitant]
     Active Substance: FUROSEMIDE
     Indication: Ascites
     Dosage: 20 MILLIGRAM, QD
     Route: 048
     Dates: start: 20201214
  11. GRAVOL [Concomitant]
     Active Substance: DIMENHYDRINATE
     Indication: Nausea
     Dosage: 50 MILLIGRAM, PRN
     Route: 048
     Dates: start: 20210102
  12. LYDERM                             /00280401/ [Concomitant]
     Indication: Post thrombotic syndrome
     Dosage: 0.05 PERCENT, PRN
     Route: 061
     Dates: start: 20210304
  13. SENOKOT [Concomitant]
     Active Substance: SENNOSIDES
     Indication: Constipation
     Dosage: 1 DOSAGE FORM, QD
     Route: 048
     Dates: start: 202009
  14. SPIRONOLACTONE [Concomitant]
     Active Substance: SPIRONOLACTONE
     Indication: Ascites
     Dosage: 50 MILLIGRAM, QD
     Route: 048
     Dates: start: 20201214
  15. SUCRALFATE [Concomitant]
     Active Substance: SUCRALFATE
     Indication: Stomatitis
     Dosage: 1 GRAM, QID PRN
     Route: 048
     Dates: start: 20210205
  16. SYMBICORT [Concomitant]
     Active Substance: BUDESONIDE\FORMOTEROL FUMARATE DIHYDRATE
     Indication: Cough
     Dosage: 100 MICROGRAM, QD
     Dates: start: 202006
  17. VENLAFAXINE [Concomitant]
     Active Substance: VENLAFAXINE HYDROCHLORIDE
     Indication: Fatigue
     Dosage: 75 MILLIGRAM, QD
     Route: 048
     Dates: start: 20210115
  18. ZOPICLONE [Concomitant]
     Active Substance: ZOPICLONE
     Indication: Insomnia
     Dosage: 7.5 MILLIGRAM, QHS PRN
     Route: 048
     Dates: start: 20201223
  19. DENOSUMAB [Concomitant]
     Active Substance: DENOSUMAB
     Indication: Hypercalcaemia
     Dosage: 120 MILLIGRAM. ONCE
     Route: 058
     Dates: start: 20210507, end: 20210507

REACTIONS (1)
  - Hypercalcaemia of malignancy [Recovered/Resolved]

NARRATIVE: CASE EVENT DATE: 20210512
